FAERS Safety Report 10228767 (Version 1)
Quarter: 2014Q2

REPORT INFORMATION
  Report Type: Spontaneous
  Country: US (occurrence: None)
  Receive Date: 20140501
  Receipt Date: 20140501
  Transmission Date: 20141212
  Serious: Yes (Other)
  Sender: FDA-Public Use
  Company Number: 1179853

PATIENT
  Age: 26 Year
  Sex: Female
  Weight: 57.73 kg

DRUGS (1)
  1. CIPROFLOXACIN 2MG/ML SOLUTION FOR INFUSION (CIPROFLOXACIN) [Suspect]
     Indication: PREOPERATIVE CARE
     Dosage: 400MG, X 1 DOSE, UNKNOWN, INTRAVENOUS
     Route: 042
     Dates: start: 20120130

REACTIONS (1)
  - Injection site pruritus [None]
